APPROVED DRUG PRODUCT: OCTREOTIDE ACETATE
Active Ingredient: OCTREOTIDE ACETATE
Strength: EQ 0.5MG BASE/ML
Dosage Form/Route: INJECTABLE;INJECTION
Application: A075957 | Product #003 | TE Code: AP
Applicant: MEITHEAL PHARMACEUTICALS INC
Approved: Oct 3, 2005 | RLD: No | RS: No | Type: RX